FAERS Safety Report 9349432 (Version 1)
Quarter: 2013Q2

REPORT INFORMATION
  Report Type: Spontaneous
  Country: US (occurrence: US)
  Receive Date: 20130614
  Receipt Date: 20130614
  Transmission Date: 20140414
  Serious: No
  Sender: FDA-Public Use
  Company Number: US-ASTRAZENECA-2013SE40334

PATIENT
  Age: 58 Year
  Sex: Male
  Weight: 102.1 kg

DRUGS (7)
  1. NEXIUM [Suspect]
     Indication: GASTROOESOPHAGEAL REFLUX DISEASE
     Route: 048
  2. PRILOSEC [Suspect]
     Indication: GASTROOESOPHAGEAL REFLUX DISEASE
     Route: 048
  3. ALLLOPURINOL [Concomitant]
     Indication: GOUT
  4. DIOVAN/HCT [Concomitant]
     Indication: BLOOD PRESSURE
  5. NORVASC [Concomitant]
     Indication: BLOOD PRESSURE
  6. ZETIA [Concomitant]
     Indication: BLOOD CHOLESTEROL
  7. ZICAL [Concomitant]
     Indication: MULTIPLE ALLERGIES

REACTIONS (16)
  - Heart rate increased [Unknown]
  - Tremor [Unknown]
  - Tremor [Unknown]
  - Glycosylated haemoglobin increased [Unknown]
  - Gout [Unknown]
  - Hypertension [Unknown]
  - Blood cholesterol increased [Unknown]
  - Blood triglycerides increased [Unknown]
  - High density lipoprotein decreased [Unknown]
  - Blood glucose increased [Unknown]
  - Blood creatinine increased [Unknown]
  - Blood calcium increased [Unknown]
  - Thyroxine decreased [Unknown]
  - Blood uric acid increased [Unknown]
  - Gastrooesophageal reflux disease [Unknown]
  - Drug dose omission [Unknown]
